FAERS Safety Report 17994180 (Version 1)
Quarter: 2020Q3

REPORT INFORMATION
  Report Type: Spontaneous
  Country: US (occurrence: US)
  Receive Date: 20200707
  Receipt Date: 20200707
  Transmission Date: 20201103
  Serious: Yes (Disabling, Other)
  Sender: FDA-Public Use
  Company Number: None

PATIENT
  Age: 3 Year
  Sex: Male
  Weight: 18 kg

DRUGS (1)
  1. CHILDRENS ROBITUSSIN HONEY COUGH AND CHEST CONGESTION DM [Suspect]
     Active Substance: DEXTROMETHORPHAN HYDROBROMIDE\GUAIFENESIN
     Indication: NASOPHARYNGITIS
     Dosage: ?          QUANTITY:5 ML;?
     Route: 048
     Dates: start: 20200107, end: 20200201

REACTIONS (3)
  - Psychomotor hyperactivity [None]
  - Speech disorder [None]
  - Abnormal behaviour [None]

NARRATIVE: CASE EVENT DATE: 20200107
